FAERS Safety Report 14160244 (Version 1)
Quarter: 2017Q4

REPORT INFORMATION
  Report Type: Spontaneous
  Country: SK (occurrence: SK)
  Receive Date: 20171106
  Receipt Date: 20171106
  Transmission Date: 20180321
  Serious: Yes (Other)
  Sender: FDA-Public Use
  Company Number: SK-ACCORD-060854

PATIENT
  Age: 53 Year
  Sex: Male

DRUGS (6)
  1. IMATINIB/IMATINIB MESILATE [Suspect]
     Active Substance: IMATINIB
     Indication: PRODUCT USED FOR UNKNOWN INDICATION
  2. CEFUROXIME. [Concomitant]
     Active Substance: CEFUROXIME
  3. FUROSEMIDE. [Suspect]
     Active Substance: FUROSEMIDE
     Indication: OEDEMA
     Dosage: 40 MG/DAY
  4. PREDNISONE. [Suspect]
     Active Substance: PREDNISONE
     Indication: OEDEMA
  5. NILOTINIB [Suspect]
     Active Substance: NILOTINIB
     Indication: PRODUCT USED FOR UNKNOWN INDICATION
     Dosage: 200 MG CPS 2-0-2
  6. VALSARTAN. [Concomitant]
     Active Substance: VALSARTAN
     Dosage: 160 MG TBL 1-0-1

REACTIONS (7)
  - Catabolic state [Unknown]
  - Pleural effusion [Unknown]
  - Empyema [Unknown]
  - Treatment failure [Unknown]
  - Drug effect incomplete [Unknown]
  - Hypoalbuminaemia [None]
  - Hypoproteinaemia [Unknown]
